FAERS Safety Report 9978529 (Version 1)
Quarter: 2014Q1

REPORT INFORMATION
  Report Type: Report from Study
  Country: US (occurrence: US)
  Receive Date: 20140306
  Receipt Date: 20140306
  Transmission Date: 20141002
  Serious: No
  Sender: FDA-Public Use
  Company Number: US-ABBVIE-13P-163-1173446-00

PATIENT
  Age: 57 Year
  Sex: Male

DRUGS (17)
  1. HUMIRA [Suspect]
     Indication: CROHN^S DISEASE
     Dates: start: 20131009
  2. AZOPT [Concomitant]
     Indication: GLAUCOMA
     Dosage: BOTH EYES
  3. TRAVATAN [Concomitant]
     Indication: MACULAR DEGENERATION
     Dosage: BOTH EYES
  4. PROCRIT [Concomitant]
     Indication: HAEMOLYTIC ANAEMIA
  5. PROCRIT [Concomitant]
     Indication: HAEMOGLOBIN DECREASED
  6. IRON [Concomitant]
     Indication: HAEMOLYTIC ANAEMIA
     Route: 048
  7. FLUOXETINE [Concomitant]
     Indication: DEPRESSION
     Route: 048
  8. FLOMAX [Concomitant]
     Indication: CYSTITIS INTERSTITIAL
     Route: 048
  9. BACLOFEN [Concomitant]
     Indication: BLADDER SPASM
     Route: 048
  10. PLAVIX [Concomitant]
     Indication: ANTICOAGULANT THERAPY
     Route: 048
  11. PLAVIX [Concomitant]
     Indication: CORONARY ARTERIAL STENT INSERTION
  12. DIAZEPAM [Concomitant]
     Indication: CYSTITIS INTERSTITIAL
     Route: 048
  13. VITAMIN D3 [Concomitant]
     Indication: PRODUCT USED FOR UNKNOWN INDICATION
     Route: 048
  14. FOLIC ACID [Concomitant]
     Indication: VITAMIN SUPPLEMENTATION
     Route: 048
  15. DICYCLOMINE [Concomitant]
     Indication: ABDOMINAL RIGIDITY
     Dosage: AS REQUIRED
     Route: 048
  16. PYRIDIUM [Concomitant]
     Indication: CYSTITIS INTERSTITIAL
     Route: 048
  17. MIRALAX [Concomitant]
     Indication: CONSTIPATION PROPHYLAXIS
     Dosage: EVERY 1-2 DAYS
     Dates: start: 20131009

REACTIONS (2)
  - Gastrointestinal pain [Not Recovered/Not Resolved]
  - Injection site pain [Not Recovered/Not Resolved]
